FAERS Safety Report 19366173 (Version 1)
Quarter: 2021Q2

REPORT INFORMATION
  Report Type: Spontaneous
  Country: US (occurrence: US)
  Receive Date: 20210603
  Receipt Date: 20210603
  Transmission Date: 20210717
  Serious: No
  Sender: FDA-Public Use
  Company Number: None

PATIENT
  Age: 91 Year
  Sex: Male
  Weight: 64.86 kg

DRUGS (13)
  1. TUMS [Concomitant]
     Active Substance: CALCIUM CARBONATE
  2. LATANOPROST EYE DROP [Concomitant]
  3. ONDANSETRON HCL [Concomitant]
     Active Substance: ONDANSETRON HYDROCHLORIDE
  4. VITAMIN D3 [Concomitant]
     Active Substance: CHOLECALCIFEROL
  5. LOSARTAN. [Concomitant]
     Active Substance: LOSARTAN
  6. PROCHLORPERAZINE MALEATE. [Concomitant]
     Active Substance: PROCHLORPERAZINE MALEATE
  7. CAPECITABINE 500 MG [Suspect]
     Active Substance: CAPECITABINE
     Indication: OESOPHAGEAL CARCINOMA
     Route: 048
     Dates: start: 20210318, end: 20210603
  8. ASPIRIN 81MG [Concomitant]
     Active Substance: ASPIRIN
  9. CAPECITABINE 500 MG [Suspect]
     Active Substance: CAPECITABINE
     Indication: ABDOMINAL NEOPLASM
     Route: 048
     Dates: start: 20210318, end: 20210603
  10. VITAMINS NOS [Concomitant]
     Active Substance: VITAMINS
  11. OMEPRAZOLE. [Concomitant]
     Active Substance: OMEPRAZOLE
  12. POLYETHYLENE GLYCOL [Concomitant]
     Active Substance: POLYETHYLENE GLYCOLS
  13. SENNOSIDES ? DOCUSATE SODIUM [Concomitant]

REACTIONS (1)
  - Disease progression [None]
